FAERS Safety Report 12649116 (Version 3)
Quarter: 2016Q3

REPORT INFORMATION
  Report Type: Spontaneous
  Country: IT (occurrence: IT)
  Receive Date: 20160812
  Receipt Date: 20160825
  Transmission Date: 20161109
  Serious: Yes (Other)
  Sender: FDA-Public Use
  Company Number: IT-PFIZER INC-2016380770

PATIENT
  Sex: Male

DRUGS (6)
  1. PERFALGAN [Suspect]
     Active Substance: ACETAMINOPHEN
     Dosage: 1000 MG, DAILY
     Route: 042
     Dates: start: 20160725
  2. LEMTRADA [Suspect]
     Active Substance: ALEMTUZUMAB
     Indication: MULTIPLE SCLEROSIS
     Dosage: 12 MG, DAILY
     Route: 042
     Dates: start: 20160725
  3. ACICLOVIR [Concomitant]
     Active Substance: ACYCLOVIR
     Dosage: 400 MG, UNK
     Route: 048
     Dates: start: 20160724
  4. METHYLPREDNISOLONE SODIUM SUCCINATE. [Suspect]
     Active Substance: METHYLPREDNISOLONE SODIUM SUCCINATE
     Indication: PREMEDICATION
     Dosage: 1000 MG, UNK
     Route: 042
     Dates: start: 20160725
  5. CETIRIZINE [Concomitant]
     Active Substance: CETIRIZINE HYDROCHLORIDE
     Dosage: 20 MG, UNK
     Route: 048
  6. LIORESAL [Concomitant]
     Active Substance: BACLOFEN
     Dosage: 50 MG, UNK
     Dates: start: 20151130

REACTIONS (2)
  - Alanine aminotransferase increased [Recovered/Resolved]
  - Hypokalaemia [Recovered/Resolved]

NARRATIVE: CASE EVENT DATE: 20160728
